FAERS Safety Report 9787797 (Version 3)
Quarter: 2014Q2

REPORT INFORMATION
  Report Type: Spontaneous
  Country: US (occurrence: US)
  Receive Date: 20131230
  Receipt Date: 20140507
  Transmission Date: 20141212
  Serious: No
  Sender: FDA-Public Use
  Company Number: US-PFIZER INC-2013368319

PATIENT
  Age: 79 Year
  Sex: Female

DRUGS (1)
  1. ISTIN [Suspect]
     Indication: HYPERTENSION
     Dosage: UNKNOWN MG 2X/DAY
     Route: 048
     Dates: start: 201309, end: 201311

REACTIONS (2)
  - Dermatitis acneiform [Recovered/Resolved]
  - Paraesthesia oral [Recovered/Resolved]
